FAERS Safety Report 4760858-3 (Version None)
Quarter: 2005Q3

REPORT INFORMATION
  Report Type: 
  Country: None (occurrence: None)
  Receive Date: 20050901
  Receipt Date: 20050822
  Transmission Date: 20060218
  Serious: Yes (Hospitalization, Other)
  Sender: FDA-Public Use
  Company Number: 2005118780

PATIENT
  Age: 75 Year
  Sex: Male
  Weight: 99.7913 kg

DRUGS (2)
  1. CELEBREX [Suspect]
     Indication: ARTHRITIS
     Dates: start: 20030101, end: 20030101
  2. ACETYLSALICYLIC ACID SRT [Concomitant]

REACTIONS (5)
  - COLITIS [None]
  - DIALYSIS [None]
  - HAEMATOCHEZIA [None]
  - HYPERTENSION [None]
  - RENAL DISORDER [None]
